FAERS Safety Report 7869398-6 (Version None)
Quarter: 2011Q4

REPORT INFORMATION
  Report Type: 
  Country: None (occurrence: None)
  Receive Date: 20111028
  Receipt Date: 20110103
  Transmission Date: 20120403
  Serious: No
  Sender: FDA-Public Use
  Company Number: US-AMGEN-USASP2011000140

PATIENT
  Sex: Female

DRUGS (2)
  1. ENBREL [Suspect]
     Indication: RHEUMATOID ARTHRITIS
     Dosage: 50 MG, QWK
     Dates: start: 19981101, end: 20101218
  2. ENBREL [Suspect]
     Indication: SJOGREN'S SYNDROME

REACTIONS (3)
  - SWELLING FACE [None]
  - TOOTH ABSCESS [None]
  - SINUS CONGESTION [None]
